FAERS Safety Report 8550024-8 (Version None)
Quarter: 2012Q3

REPORT INFORMATION
  Report Type: 
  Country: None (occurrence: None)
  Receive Date: 20120718
  Receipt Date: 20120711
  Transmission Date: 20120928
  Serious: Yes (Other)
  Sender: FDA-Public Use
  Company Number: 2012TP000268

PATIENT
  Age: 76 Year
  Sex: Male

DRUGS (8)
  1. LIDODERM [Suspect]
     Indication: POST HERPETIC NEURALGIA
     Dosage: 1 PATCH, 1X; TOP
     Route: 061
  2. NEURONTIN [Concomitant]
  3. METHADONE HCL [Concomitant]
  4. VITAMIN D [Concomitant]
  5. MEGESTROL ACETATE [Concomitant]
  6. CLONIDINE [Concomitant]
  7. LASIX [Concomitant]
  8. LEVOTHROID [Concomitant]

REACTIONS (4)
  - HIP FRACTURE [None]
  - RENAL FAILURE [None]
  - WRIST FRACTURE [None]
  - PERITONEAL DIALYSIS [None]
